FAERS Safety Report 24143654 (Version 1)
Quarter: 2024Q3

REPORT INFORMATION
  Report Type: Report from Study
  Country: US (occurrence: US)
  Receive Date: 20240727
  Receipt Date: 20240727
  Transmission Date: 20241017
  Serious: Yes (Hospitalization, Other)
  Sender: ABBVIE
  Company Number: US-ABBVIE-5851047

PATIENT
  Sex: Female

DRUGS (3)
  1. HUMIRA [Suspect]
     Active Substance: ADALIMUMAB
     Indication: Crohn^s disease
     Dosage: DAY 15?FORM STRENGTH: 40 MILLIGRAM
     Route: 058
     Dates: start: 2016
  2. HUMIRA [Suspect]
     Active Substance: ADALIMUMAB
     Dosage: DAY 1?FORM STRENGTH: 40 MILLIGRAM
     Route: 058
     Dates: start: 20240722, end: 202407
  3. HUMIRA [Suspect]
     Active Substance: ADALIMUMAB
     Dosage: FORM STRENGTH: 40 MILLIGRAM
     Route: 058
     Dates: end: 20240523

REACTIONS (3)
  - Nephrolithiasis [Recovering/Resolving]
  - Renal impairment [Recovering/Resolving]
  - Urosepsis [Recovering/Resolving]
